FAERS Safety Report 7163736-8 (Version None)
Quarter: 2010Q4

REPORT INFORMATION
  Report Type: 
  Country: None (occurrence: None)
  Receive Date: 20101215
  Receipt Date: 20100604
  Transmission Date: 20110411
  Serious: Yes (Hospitalization, Other)
  Sender: FDA-Public Use
  Company Number: US-PFIZER INC-2010002564

PATIENT
  Sex: Male
  Weight: 70.295 kg

DRUGS (7)
  1. LYRICA [Interacting]
     Indication: NEUROPATHY PERIPHERAL
     Dosage: 50 MG, 3X/DAY
     Route: 048
     Dates: start: 20080701
  2. LYRICA [Interacting]
     Indication: FIBROMYALGIA
  3. NEURONTIN [Suspect]
     Indication: PAIN
     Dosage: 300 MG, 4X/DAY
     Route: 048
     Dates: start: 20070101, end: 20080101
  4. NEURONTIN [Suspect]
     Dosage: UNK
  5. MORPHINE SULFATE [Interacting]
     Dosage: UNK
  6. VALIUM [Concomitant]
     Indication: PAIN
     Dosage: 10 MG, 3X/DAY
     Route: 048
  7. CYMBALTA [Concomitant]
     Indication: PAIN
     Dosage: 60 MG, 2X/DAY
     Route: 048

REACTIONS (15)
  - COLD SWEAT [None]
  - CONVULSION [None]
  - DEHYDRATION [None]
  - DIARRHOEA [None]
  - DRUG INTERACTION [None]
  - DYSPHAGIA [None]
  - ERECTILE DYSFUNCTION [None]
  - HEAD INJURY [None]
  - LOSS OF CONSCIOUSNESS [None]
  - MERALGIA PARAESTHETICA [None]
  - MIGRAINE [None]
  - NERVE COMPRESSION [None]
  - NEUROPATHY PERIPHERAL [None]
  - SPINAL OPERATION [None]
  - SUICIDAL IDEATION [None]
